FAERS Safety Report 7303877-5 (Version None)
Quarter: 2011Q1

REPORT INFORMATION
  Report Type: 
  Country: None (occurrence: None)
  Receive Date: 20110221
  Receipt Date: 20110215
  Transmission Date: 20110831
  Serious: Yes (Hospitalization)
  Sender: FDA-Public Use
  Company Number: B0697667A

PATIENT
  Sex: Female

DRUGS (5)
  1. ZOVIRAX [Suspect]
     Indication: ENCEPHALITIS HERPES
     Dosage: 1500MG PER DAY
     Route: 042
     Dates: start: 20110120, end: 20110124
  2. DEXAMETHASONE [Concomitant]
     Dosage: 12MG PER DAY
     Route: 048
     Dates: start: 20110120
  3. TAKEPRON [Concomitant]
     Indication: PROPHYLAXIS
     Dosage: 30MG PER DAY
     Route: 048
     Dates: start: 20110120
  4. DECADRON [Concomitant]
     Indication: ENCEPHALITIS HERPES
     Route: 048
     Dates: start: 20110120, end: 20110122
  5. ALEVIATIN [Concomitant]
     Indication: ENCEPHALITIS HERPES
     Route: 048
     Dates: start: 20110120, end: 20110126

REACTIONS (3)
  - RENAL DISORDER [None]
  - BLOOD CREATININE INCREASED [None]
  - ALTERED STATE OF CONSCIOUSNESS [None]
